FAERS Safety Report 9424328 (Version 1)
Quarter: 2013Q3

REPORT INFORMATION
  Report Type: Spontaneous
  Country: US (occurrence: None)
  Receive Date: 20130726
  Receipt Date: 20130726
  Transmission Date: 20140515
  Serious: Yes (Hospitalization)
  Sender: FDA-Public Use
  Company Number: None

PATIENT
  Age: 68 Year
  Sex: Female
  Weight: 44.4 kg

DRUGS (7)
  1. PACLITAXEL [Suspect]
     Dates: start: 20110906, end: 20110906
  2. TOPOTECAN [Suspect]
     Dates: end: 20110908
  3. BENICAR [Concomitant]
  4. GLIMEPRIDE [Concomitant]
  5. METROPROLOL [Concomitant]
  6. SIMVASTATIN [Concomitant]
  7. JANUVIA [Concomitant]

REACTIONS (5)
  - Febrile neutropenia [None]
  - Anaemia [None]
  - Urinary tract infection [None]
  - Device related infection [None]
  - Staphylococcal infection [None]
